FAERS Safety Report 14514583 (Version 1)
Quarter: 2018Q1

REPORT INFORMATION
  Report Type: Spontaneous
  Country: US (occurrence: US)
  Receive Date: 20180209
  Receipt Date: 20180209
  Transmission Date: 20180509
  Serious: Yes (Disabling, Other)
  Sender: FDA-Public Use
  Company Number: US-REGENERON PHARMACEUTICALS, INC.-2018-12982

PATIENT

DRUGS (2)
  1. EYLEA [Suspect]
     Active Substance: AFLIBERCEPT
     Indication: NEOVASCULAR AGE-RELATED MACULAR DEGENERATION
     Dosage: LEFT EYE (OS), EVERY 4 WEEKS
     Route: 031
     Dates: start: 20170418
  2. EYLEA [Suspect]
     Active Substance: AFLIBERCEPT
     Dosage: LEFT EYE (OS), EVERY 4 WEEKS
     Route: 031
     Dates: start: 20180116, end: 20180116

REACTIONS (2)
  - Blindness transient [Recovered/Resolved]
  - Endophthalmitis [Unknown]

NARRATIVE: CASE EVENT DATE: 20180118
